FAERS Safety Report 8435508-5 (Version None)
Quarter: 2012Q2

REPORT INFORMATION
  Report Type: 
  Country: None (occurrence: None)
  Receive Date: 20120614
  Receipt Date: 20120607
  Transmission Date: 20120825
  Serious: Yes (Other)
  Sender: FDA-Public Use
  Company Number: CN-PFIZER INC-2012138851

PATIENT
  Age: 54 Year
  Sex: Female

DRUGS (2)
  1. EPIRUBICIN HYDROCHLORIDE [Suspect]
     Indication: BREAST CANCER
     Dosage: 120 MG, 1X/DAY
     Route: 041
     Dates: start: 20110427, end: 20110427
  2. PACLITAXEL [Concomitant]
     Indication: BREAST CANCER
     Dosage: 270 MG, UNK
     Dates: start: 20110427, end: 20110427

REACTIONS (2)
  - BONE MARROW FAILURE [None]
  - ALOPECIA [None]
